FAERS Safety Report 21299477 (Version 1)
Quarter: 2022Q3

REPORT INFORMATION
  Report Type: Spontaneous
  Country: DK (occurrence: DK)
  Receive Date: 20220906
  Receipt Date: 20220906
  Transmission Date: 20221027
  Serious: Yes (Other)
  Sender: FDA-Public Use
  Company Number: None

PATIENT
  Age: 40 Year
  Sex: Female

DRUGS (1)
  1. TAMOXIFEN [Suspect]
     Active Substance: TAMOXIFEN
     Indication: Hormone receptor positive breast cancer
     Dosage: STRENGTH AND DOSE: UNKNOWN
     Route: 065
     Dates: end: 20210818

REACTIONS (5)
  - Carpal tunnel syndrome [Unknown]
  - Cataract [Recovered/Resolved]
  - Vaginal haemorrhage [Unknown]
  - Alopecia [Unknown]
  - Fatigue [Unknown]
